FAERS Safety Report 7197524-3 (Version None)
Quarter: 2010Q4

REPORT INFORMATION
  Report Type: 
  Country: None (occurrence: None)
  Receive Date: 20101213
  Receipt Date: 20101126
  Transmission Date: 20110411
  Serious: Yes (Death, Hospitalization)
  Sender: FDA-Public Use
  Company Number: 2010005096

PATIENT
  Age: 55 Year
  Sex: Male

DRUGS (15)
  1. ERLOTINIB HYDROCHLORIDE [Suspect]
     Indication: PANCREATIC CARCINOMA METASTATIC
     Dosage: 100 MG, QD, ORAL
     Route: 048
     Dates: start: 20090324
  2. GEMCITABINE [Suspect]
     Indication: PANCREATIC CARCINOMA METASTATIC
     Dosage: 2000 MG, 2000 MG 1X PER 3 WEEK,  INTRAVENOUS
     Route: 042
     Dates: start: 20090324
  3. ZYLORIC [Concomitant]
  4. LANTUS [Concomitant]
  5. FUROSEMIDE [Concomitant]
  6. SPIRONOLACTONE [Concomitant]
  7. COVERSYL (PERINEOPRIL) [Concomitant]
  8. EMCORETIC (BISELECT) [Concomitant]
  9. ASPIRIN [Concomitant]
  10. LERCANIDIPINE [Concomitant]
  11. APIDRA [Concomitant]
  12. MOXON (MOXONIDINE) [Concomitant]
  13. ALIZAPRIDE (ALIZAPRIDE) [Concomitant]
  14. METHYLPRENDISOLONE (METHYLPRENDISOLONE) [Concomitant]
  15. CHOLECALCIFEROL [Concomitant]

REACTIONS (4)
  - ANAEMIA [None]
  - DECREASED APPETITE [None]
  - SYNCOPE [None]
  - THROMBOCYTOPENIA [None]
